FAERS Safety Report 17848486 (Version 4)
Quarter: 2020Q4

REPORT INFORMATION
  Report Type: Report from Study
  Country: US (occurrence: US)
  Receive Date: 20200602
  Receipt Date: 20201222
  Transmission Date: 20210113
  Serious: Yes (Death, Life-Threatening, Hospitalization, Other)
  Sender: FDA-Public Use
  Company Number: US-EXELIXIS-XL18420030204

PATIENT
  Age: 67 Year
  Sex: Male
  Weight: 96.6 kg

DRUGS (14)
  1. SENNA [Concomitant]
     Active Substance: SENNA LEAF\SENNOSIDES\SENNOSIDES A AND B
  2. INSULIN [Concomitant]
     Active Substance: INSULIN NOS
  3. XL184 [Suspect]
     Active Substance: CABOZANTINIB
     Indication: GASTRIC CANCER
     Dosage: 40 MG, QD
     Route: 048
     Dates: start: 20200507, end: 20200523
  4. MIRTAZAPINE. [Concomitant]
     Active Substance: MIRTAZAPINE
  5. TAMSULOSIN [Concomitant]
     Active Substance: TAMSULOSIN
  6. ENOXAPARIN [Concomitant]
     Active Substance: ENOXAPARIN
     Dosage: UNK
     Dates: start: 20200204
  7. SUCRALFATE. [Concomitant]
     Active Substance: SUCRALFATE
  8. ATEZOLIZUMAB. [Suspect]
     Active Substance: ATEZOLIZUMAB
     Indication: GASTRIC CANCER
     Dosage: 1200 MG, Q3WEEKS
     Route: 042
     Dates: start: 20200507, end: 20200523
  9. METOCLOPRAMIDE. [Concomitant]
     Active Substance: METOCLOPRAMIDE
  10. BUPROPION. [Concomitant]
     Active Substance: BUPROPION
  11. OMEPRAZOLE. [Concomitant]
     Active Substance: OMEPRAZOLE
  12. LOVENOX [Concomitant]
     Active Substance: ENOXAPARIN SODIUM
  13. MORPHINE [Concomitant]
     Active Substance: MORPHINE
  14. ONDANSETRON [Concomitant]
     Active Substance: ONDANSETRON

REACTIONS (3)
  - Neuroleptic malignant syndrome [Not Recovered/Not Resolved]
  - Sepsis [Fatal]
  - Bacteraemia [Not Recovered/Not Resolved]

NARRATIVE: CASE EVENT DATE: 20200523
